FAERS Safety Report 9678443 (Version 1)
Quarter: 2013Q4

REPORT INFORMATION
  Report Type: Spontaneous
  Country: GB (occurrence: None)
  Receive Date: 20131106
  Receipt Date: 20131106
  Transmission Date: 20140711
  Serious: Yes (Life-Threatening, Hospitalization)
  Sender: FDA-Public Use
  Company Number: 2013/198

PATIENT
  Age: 36 Year
  Sex: 0

DRUGS (3)
  1. VENLAFAXINE (NO PREF. NAME) [Suspect]
     Indication: DEPRESSION
     Dates: start: 200902, end: 2009
  2. QUETIAPINE (NO PREF. NAME) [Suspect]
     Indication: DEPRESSION
     Dates: start: 200905, end: 2009
  3. LEVOTHYROXINE [Concomitant]

REACTIONS (1)
  - Neuroleptic malignant syndrome [None]
